FAERS Safety Report 4912694-2 (Version None)
Quarter: 2006Q1

REPORT INFORMATION
  Report Type: 
  Country: None (occurrence: None)
  Receive Date: 20060215
  Receipt Date: 20050105
  Transmission Date: 20060701
  Serious: Yes (Hospitalization)
  Sender: FDA-Public Use
  Company Number: US-MERCK-0501USA00576

PATIENT
  Age: 79 Year
  Sex: Male
  Weight: 95 kg

DRUGS (2)
  1. VIOXX [Suspect]
     Indication: BACK PAIN
     Route: 048
     Dates: start: 19991028, end: 20020612
  2. VIOXX [Suspect]
     Route: 048
     Dates: start: 19991028, end: 20020612

REACTIONS (17)
  - BRADYARRHYTHMIA [None]
  - CARDIAC FAILURE [None]
  - CARDIAC FAILURE CHRONIC [None]
  - CARDIAC FAILURE CONGESTIVE [None]
  - COAGULATION TIME PROLONGED [None]
  - DIABETES MELLITUS NON-INSULIN-DEPENDENT [None]
  - DIVERTICULUM INTESTINAL [None]
  - HYPERTENSION [None]
  - IRON DEFICIENCY [None]
  - ISCHAEMIC CARDIOMYOPATHY [None]
  - MITRAL VALVE INCOMPETENCE [None]
  - MYOCARDIAL INFARCTION [None]
  - OESOPHAGEAL MASS [None]
  - RECTAL HAEMORRHAGE [None]
  - RENAL FAILURE [None]
  - VARICES OESOPHAGEAL [None]
  - VENTRICULAR TACHYCARDIA [None]
